FAERS Safety Report 23836218 (Version 1)
Quarter: 2024Q2

REPORT INFORMATION
  Report Type: Spontaneous
  Country: MO (occurrence: MO)
  Receive Date: 20240509
  Receipt Date: 20240509
  Transmission Date: 20240716
  Serious: Yes (Hospitalization)
  Sender: FDA-Public Use
  Company Number: MO-PFIZER INC-202400102076

PATIENT
  Age: 20 Year
  Sex: Male

DRUGS (1)
  1. LORLATINIB [Suspect]
     Active Substance: LORLATINIB
     Indication: Non-small cell lung cancer metastatic

REACTIONS (2)
  - Angiopathy [Recovered/Resolved]
  - Lipids abnormal [Recovered/Resolved]

NARRATIVE: CASE EVENT DATE: 20240506
